FAERS Safety Report 5763910-9 (Version None)
Quarter: 2008Q2

REPORT INFORMATION
  Report Type: 
  Country: None (occurrence: None)
  Receive Date: 20080606
  Receipt Date: 20080606
  Transmission Date: 20081010
  Serious: Yes (Other)
  Sender: FDA-Public Use
  Company Number: None

PATIENT
  Age: 64 Year
  Sex: Male
  Weight: 95.2554 kg

DRUGS (1)
  1. BYSTOLIC [Suspect]
     Indication: HYPERTENSION
     Dosage: 1TABLET DAILY PO
     Route: 048
     Dates: start: 20080518, end: 20080605

REACTIONS (5)
  - BLISTER [None]
  - HYPERAESTHESIA [None]
  - RASH PRURITIC [None]
  - SWOLLEN TONGUE [None]
  - WEIGHT INCREASED [None]
